FAERS Safety Report 11499933 (Version 1)
Quarter: 2015Q3

REPORT INFORMATION
  Report Type: Spontaneous
  Country: KR (occurrence: None)
  Receive Date: 20150910
  Receipt Date: 20150910
  Transmission Date: 20151125
  Serious: Yes (Life-Threatening, Other)
  Sender: FDA-Public Use
  Company Number: CCF09032015

PATIENT
  Age: 33 Year
  Sex: Female

DRUGS (2)
  1. CHLORPHENIRAMINE. [Suspect]
     Active Substance: CHLORPHENIRAMINE
     Indication: URTICARIA
     Dosage: DOSE
     Route: 042
  2. CHLORPHENIRAMINE. [Suspect]
     Active Substance: CHLORPHENIRAMINE
     Dosage: DOSE
     Route: 048

REACTIONS (4)
  - Hypotension [None]
  - Anaphylactic reaction [None]
  - Dizziness [None]
  - Condition aggravated [None]

NARRATIVE: CASE EVENT DATE: 2015
